FAERS Safety Report 5271155-4 (Version None)
Quarter: 2007Q1

REPORT INFORMATION
  Report Type: 
  Country: None (occurrence: None)
  Receive Date: 20070315
  Receipt Date: 20070301
  Transmission Date: 20070707
  Serious: Yes (Other)
  Sender: FDA-Public Use
  Company Number: 237556

PATIENT
  Age: 77 Year
  Sex: Male

DRUGS (1)
  1. LUCENTIS [Suspect]
     Indication: CHOROIDAL NEOVASCULARISATION
     Dosage: 0.05 ML, UNK, UNK

REACTIONS (5)
  - CONJUNCTIVAL OEDEMA [None]
  - CORNEAL OEDEMA [None]
  - EYELID OEDEMA [None]
  - HYPOPYON [None]
  - VITRITIS [None]
